APPROVED DRUG PRODUCT: PRIFTIN
Active Ingredient: RIFAPENTINE
Strength: 150MG
Dosage Form/Route: TABLET;ORAL
Application: N021024 | Product #001
Applicant: SANOFI AVENTIS US LLC
Approved: Jun 22, 1998 | RLD: Yes | RS: Yes | Type: RX